FAERS Safety Report 8360318-7 (Version None)
Quarter: 2012Q2

REPORT INFORMATION
  Report Type: 
  Country: None (occurrence: None)
  Receive Date: 20120515
  Receipt Date: 20120507
  Transmission Date: 20120825
  Serious: No
  Sender: FDA-Public Use
  Company Number: US-B.I. PHARMACEUTICALS,INC./RIDGEFIELD-2012-BP-10625BP

PATIENT
  Sex: Female

DRUGS (2)
  1. PRADAXA [Suspect]
     Dates: end: 20120501
  2. WARFARIN SODIUM [Concomitant]
     Dates: start: 20120501

REACTIONS (1)
  - INTERNATIONAL NORMALISED RATIO [None]
